FAERS Safety Report 7188952-0 (Version None)
Quarter: 2010Q4

REPORT INFORMATION
  Report Type: 
  Country: None (occurrence: None)
  Receive Date: 20101222
  Receipt Date: 20100729
  Transmission Date: 20110411
  Serious: No
  Sender: FDA-Public Use
  Company Number: US-AMGEN-KDL427918

PATIENT

DRUGS (1)
  1. ENBREL [Suspect]
     Indication: RHEUMATOID ARTHRITIS
     Dosage: 50 MG, QWK
     Route: 058
     Dates: start: 20100622

REACTIONS (6)
  - INCREASED TENDENCY TO BRUISE [None]
  - IRRITABILITY [None]
  - MOOD ALTERED [None]
  - RASH MACULAR [None]
  - SKIN REACTION [None]
  - TOOTH ABSCESS [None]
